FAERS Safety Report 10309538 (Version 1)
Quarter: 2014Q3

REPORT INFORMATION
  Report Type: Report from Study
  Country: GB (occurrence: GB)
  Receive Date: 20140717
  Receipt Date: 20140717
  Transmission Date: 20150326
  Serious: Yes (Death)
  Sender: FDA-Public Use
  Company Number: GB-ROCHE-1435888

PATIENT
  Age: 68 Year
  Sex: Female

DRUGS (12)
  1. DOMPERIDONE [Concomitant]
     Active Substance: DOMPERIDONE
     Indication: COLON CANCER
     Route: 048
     Dates: end: 20130816
  2. ONDANSETRON [Concomitant]
     Active Substance: ONDANSETRON
     Indication: COLON CANCER
     Route: 048
     Dates: end: 20130816
  3. BEVACIZUMAB [Suspect]
     Active Substance: BEVACIZUMAB
     Indication: COLON CANCER
     Route: 042
     Dates: end: 20130816
  4. APREPITANT [Concomitant]
     Active Substance: APREPITANT
     Indication: COLON CANCER
     Route: 048
     Dates: end: 20130816
  5. LOPERAMIDE [Concomitant]
     Active Substance: LOPERAMIDE
     Indication: COLON CANCER
     Route: 048
     Dates: end: 20130816
  6. APREPITANT [Concomitant]
     Active Substance: APREPITANT
     Route: 048
     Dates: end: 20130816
  7. DEXAMETHASONE. [Concomitant]
     Active Substance: DEXAMETHASONE
     Route: 048
     Dates: end: 20130816
  8. GLUCOSE 5% [Concomitant]
     Active Substance: DEXTROSE
     Indication: COLON CANCER
     Route: 042
  9. CAPECITABINE [Suspect]
     Active Substance: CAPECITABINE
     Indication: COLON CANCER
     Route: 048
     Dates: end: 20130816
  10. OXALIPLATIN. [Concomitant]
     Active Substance: OXALIPLATIN
     Indication: COLON CANCER
     Route: 042
     Dates: end: 20130816
  11. SODIUM CHLORIDE. [Concomitant]
     Active Substance: SODIUM CHLORIDE
     Indication: COLON CANCER
     Route: 042
     Dates: end: 20130816
  12. DEXAMETHASONE. [Concomitant]
     Active Substance: DEXAMETHASONE
     Indication: COLON CANCER
     Route: 048
     Dates: end: 20130816

REACTIONS (1)
  - Death [Fatal]
